FAERS Safety Report 21426010 (Version 1)
Quarter: 2022Q4

REPORT INFORMATION
  Report Type: Spontaneous
  Country: CZ (occurrence: CZ)
  Receive Date: 20221008
  Receipt Date: 20221008
  Transmission Date: 20230113
  Serious: Yes (Other)
  Sender: FDA-Public Use
  Company Number: CZ-AMGEN-CZESP2022168417

PATIENT
  Age: 46 Year
  Sex: Female

DRUGS (6)
  1. APREMILAST [Suspect]
     Active Substance: APREMILAST
     Indication: Psoriasis
     Dosage: UNK
     Route: 065
     Dates: start: 201709, end: 201808
  2. APREMILAST [Suspect]
     Active Substance: APREMILAST
     Indication: Psoriatic arthropathy
  3. APREMILAST [Suspect]
     Active Substance: APREMILAST
     Indication: Psoriasis
  4. ADALIMUMAB [Suspect]
     Active Substance: ADALIMUMAB
     Indication: Psoriasis
     Dosage: UNK
     Route: 065
  5. ADALIMUMAB [Suspect]
     Active Substance: ADALIMUMAB
     Indication: Psoriatic arthropathy
  6. ACITRETIN [Suspect]
     Active Substance: ACITRETIN
     Indication: Product used for unknown indication
     Dosage: UNK
     Route: 065
     Dates: start: 201809, end: 201905

REACTIONS (6)
  - Psoriatic arthropathy [Unknown]
  - Psoriasis [Unknown]
  - Drug ineffective [Unknown]
  - Dyspepsia [Unknown]
  - Alopecia [Unknown]
  - Mucosal dryness [Unknown]
